FAERS Safety Report 23944759 (Version 1)
Quarter: 2024Q2

REPORT INFORMATION
  Report Type: Other
  Country: ES (occurrence: None)
  Receive Date: 20240606
  Receipt Date: 20240606
  Transmission Date: 20240716
  Serious: Yes (Hospitalization)
  Sender: FDA-Public Use
  Company Number: ES-ROCHE-3575355

PATIENT

DRUGS (1)
  1. RITUXIMAB [Suspect]
     Active Substance: RITUXIMAB
     Indication: Autoimmune hepatitis
     Dosage: 2-DOSE INDUCTION COURSE WITH 1 GRAM EVERY 2 WEEKS, PERIODICAL DOSES, EITHER FIXED EVERY 6 MONTHS.
     Route: 042

REACTIONS (5)
  - Pleurisy bacterial [Unknown]
  - Septic shock [Unknown]
  - Urinary tract infection [Unknown]
  - Folliculitis [Unknown]
  - Respiratory tract infection [Unknown]
